FAERS Safety Report 8771478 (Version 1)
Quarter: 2012Q4

REPORT INFORMATION
  Report Type: 
  Country: DE (occurrence: DE)
  Receive Date: 20120905
  Receipt Date: 20120905
  Transmission Date: 20130627
  Serious: Yes (Hospitalization)
  Sender: FDA-Public Use
  Company Number: DE-ARROW-2012-14957

PATIENT
  Age: 9 Year
  Sex: Male
  Weight: 40 kg

DRUGS (3)
  1. RISPERIDONE (UNKNOWN) [Suspect]
     Indication: ATTENTION DEFICIT/HYPERACTIVITY DISORDER
     Dosage: 1 mg, daily
     Route: 048
     Dates: start: 20101021, end: 20120211
  2. METHYLPHENIDATE [Suspect]
     Indication: ATTENTION DEFICIT/HYPERACTIVITY DISORDER
     Dosage: one tab daily
     Route: 048
     Dates: end: 20120213
  3. ATOMOXETINE [Suspect]
     Indication: ATTENTION DEFICIT/HYPERACTIVITY DISORDER
     Dosage: one tab daily
     Route: 048
     Dates: start: 20101103, end: 20120206

REACTIONS (6)
  - Blood pressure increased [Recovered/Resolved]
  - Tachycardia [Not Recovered/Not Resolved]
  - Tic [Recovered/Resolved]
  - Weight decreased [Recovered/Resolved]
  - Decreased appetite [Recovered/Resolved]
  - Sensation of foreign body [Recovered/Resolved]
